FAERS Safety Report 9374586 (Version 1)
Quarter: 2013Q2

REPORT INFORMATION
  Report Type: Spontaneous
  Country: US (occurrence: US)
  Receive Date: 20130628
  Receipt Date: 20130628
  Transmission Date: 20140414
  Serious: No
  Sender: FDA-Public Use
  Company Number: US-BAYER-2013-079271

PATIENT
  Age: 49 Year
  Sex: Male
  Weight: 67.12 kg

DRUGS (10)
  1. ALEVE CAPLET [Suspect]
     Indication: ANALGESIC THERAPY
     Dosage: 2 DF, OTHER FREQUENCY
     Route: 048
     Dates: start: 2009
  2. MIRTAZAPINE [Concomitant]
     Dosage: 2 DF, QD
  3. INVEGA [Concomitant]
  4. AMBIEN [Concomitant]
  5. NEURONTIN [Concomitant]
     Dosage: 4 DF, QD
  6. METHOTREXATE [Concomitant]
  7. BACLOFEN [Concomitant]
     Dosage: 4 DF, QD
  8. KLONOPIN [Concomitant]
     Dosage: 4 DF, QD
  9. PROPRANOLOL [Concomitant]
     Dosage: 4 DF, QD
  10. TRAMADOL [Concomitant]
     Dosage: 3 DF, QD

REACTIONS (2)
  - Inappropriate schedule of drug administration [None]
  - Incorrect dose administered [None]
